FAERS Safety Report 7606023-3 (Version None)
Quarter: 2011Q3

REPORT INFORMATION
  Report Type: 
  Country: None (occurrence: None)
  Receive Date: 20110713
  Receipt Date: 20110703
  Transmission Date: 20111222
  Serious: Yes (Hospitalization)
  Sender: FDA-Public Use
  Company Number: PHHY2011US59977

PATIENT
  Age: 39 Year
  Sex: Female
  Weight: 129 kg

DRUGS (11)
  1. TYSABRI [Concomitant]
     Indication: MULTIPLE SCLEROSIS
     Dosage: 300 MG/15 ML MONTHLY
     Route: 042
     Dates: start: 20080609
  2. INTERFERON BETA-1B [Suspect]
     Dosage: UNK UKN, UNK
     Route: 058
  3. LOVENOX [Concomitant]
     Dosage: 300 MG, DAILY
     Route: 058
     Dates: start: 20090120, end: 20110106
  4. CLONAZEPAM [Concomitant]
     Indication: INSOMNIA
     Dosage: 0.5 MG, PRN
     Dates: start: 20090909
  5. VESICARE [Concomitant]
     Indication: BLADDER DISORDER
     Dosage: 5 MG, DAILY
     Route: 048
     Dates: start: 20110608
  6. DULOXETIME HYDROCHLORIDE [Concomitant]
     Dosage: UNK UKN, UNK
  7. LYRICA [Concomitant]
     Indication: NEURALGIA
     Dosage: 600 MG, DAILY
     Route: 048
     Dates: start: 20080201
  8. WARFARIN SODIUM [Concomitant]
     Dosage: UNK UKN, UNK
  9. MORPHINE SULFATE [Concomitant]
     Indication: PAIN
     Dosage: 200 MG, DAILY
     Route: 048
     Dates: start: 20090123
  10. HEPARIN [Concomitant]
     Dosage: UNK UKN, UNK
  11. INTERFERON BETA-1A [Concomitant]
     Dosage: UNK UKN, UNK
     Route: 030

REACTIONS (2)
  - ARTHRALGIA [None]
  - PNEUMONIA [None]
